FAERS Safety Report 7972482-X (Version None)
Quarter: 2011Q4

REPORT INFORMATION
  Report Type: 
  Country: None (occurrence: None)
  Receive Date: 20111213
  Receipt Date: 20111206
  Transmission Date: 20120403
  Serious: Yes (Hospitalization)
  Sender: FDA-Public Use
  Company Number: US-AMGEN-USASP2011064913

PATIENT
  Sex: Male

DRUGS (1)
  1. ENBREL [Suspect]
     Indication: PSORIASIS
     Dosage: 25 MG, 2 TIMES/WK
     Dates: start: 19980101

REACTIONS (6)
  - INGUINAL HERNIA [None]
  - RHEUMATOID ARTHRITIS [None]
  - TRANSPLANT REJECTION [None]
  - SYSTEMIC LUPUS ERYTHEMATOSUS [None]
  - PSORIASIS [None]
  - MALAISE [None]
